FAERS Safety Report 9530939 (Version 2)
Quarter: 2014Q3

REPORT INFORMATION
  Report Type: Spontaneous
  Country: US (occurrence: None)
  Receive Date: 20130329
  Receipt Date: 20140701
  Transmission Date: 20150326
  Serious: No
  Sender: FDA-Public Use
  Company Number: 1000041252

PATIENT
  Age: 64 Year
  Sex: Female

DRUGS (10)
  1. CLONAZEPAM (CLONAZEPAM) [Concomitant]
  2. MVI (VITAMINS NOS) [Concomitant]
  3. ACICLOVIR (ACYCLOVIR) (ACYCLOVIR) [Concomitant]
  4. FOLIC ACID (FOLIC ACID) [Concomitant]
     Active Substance: FOLIC ACID
  5. RESTASIS (CYCLOSPORIN) [Concomitant]
  6. LIPITOR [Concomitant]
     Active Substance: ATORVASTATIN CALCIUM
  7. LINZESS [Suspect]
     Active Substance: LINACLOTIDE
     Indication: GASTROINTESTINAL DISORDER
     Route: 048
     Dates: start: 2012, end: 201404
  8. HYDROCHLOROTHIAZIDE (HYDROCHLOROTHIAZIDE) [Concomitant]
     Active Substance: HYDROCHLOROTHIAZIDE
  9. LINZESS [Suspect]
     Active Substance: LINACLOTIDE
     Indication: GASTROINTESTINAL DISORDER
     Route: 048
     Dates: start: 201212, end: 20121224
  10. MIRALAX (POLYETHYLENE GLYCOL) [Concomitant]

REACTIONS (4)
  - Off label use [None]
  - Abdominal pain [None]
  - Diarrhoea [None]
  - Drug ineffective [None]

NARRATIVE: CASE EVENT DATE: 201212
